FAERS Safety Report 5637180-6 (Version None)
Quarter: 2008Q1

REPORT INFORMATION
  Report Type: 
  Country: None (occurrence: None)
  Receive Date: 20080221
  Receipt Date: 20080213
  Transmission Date: 20080703
  Serious: Yes (Hospitalization)
  Sender: FDA-Public Use
  Company Number: 163-21880-07040581

PATIENT
  Age: 56 Year
  Sex: Male

DRUGS (6)
  1. REVLIMID [Suspect]
     Indication: MULTIPLE MYELOMA
     Dosage: 25 MG, 25 MG EVERY NIGHT AT BEDTIME, ORAL
     Route: 048
     Dates: start: 20070221
  2. DEXAMETHASONE TAB [Concomitant]
  3. ZOMETA [Concomitant]
  4. MORPHINE [Concomitant]
  5. MULTIVITAMIN [Concomitant]
  6. IRON (IRON) [Concomitant]

REACTIONS (9)
  - CONSTIPATION [None]
  - DRY SKIN [None]
  - FATIGUE [None]
  - PRESYNCOPE [None]
  - PRURITUS [None]
  - RASH [None]
  - STOMATITIS [None]
  - UPPER LIMB FRACTURE [None]
  - WHITE BLOOD CELL COUNT DECREASED [None]
